FAERS Safety Report 18495232 (Version 1)
Quarter: 2020Q4

REPORT INFORMATION
  Report Type: Spontaneous
  Country: US (occurrence: US)
  Receive Date: 20201111
  Receipt Date: 20201111
  Transmission Date: 20210114
  Serious: Yes (Death)
  Sender: FDA-Public Use
  Company Number: None

PATIENT
  Age: 79 Year
  Sex: Male

DRUGS (2)
  1. BRAFTOVI [Suspect]
     Active Substance: ENCORAFENIB
     Indication: NEOPLASM MALIGNANT
     Route: 048
  2. MEKTOVI [Suspect]
     Active Substance: BINIMETINIB
     Indication: NEOPLASM MALIGNANT
     Route: 048

REACTIONS (1)
  - Death [None]
